FAERS Safety Report 6330300-X (Version None)
Quarter: 2009Q3

REPORT INFORMATION
  Report Type: 
  Country: None (occurrence: None)
  Receive Date: 20090827
  Receipt Date: 20090706
  Transmission Date: 20100115
  Serious: No
  Sender: FDA-Public Use
  Company Number: US-KINGPHARMUSA00001-K200900821

PATIENT
  Age: 41 Year
  Sex: Female

DRUGS (2)
  1. FLECTOR [Suspect]
     Indication: PAIN
     Dosage: 1 PATCH, QD
     Route: 061
     Dates: start: 20090513, end: 20090601
  2. FLECTOR [Suspect]
     Dosage: 1 PATCH, QD
     Route: 061
     Dates: start: 20090601

REACTIONS (1)
  - APPLICATION SITE DISCOLOURATION [None]
